FAERS Safety Report 4820904-5 (Version None)
Quarter: 2005Q4

REPORT INFORMATION
  Report Type: 
  Country: None (occurrence: None)
  Receive Date: 20051104
  Receipt Date: 20051104
  Transmission Date: 20060501
  Serious: Yes (Hospitalization, Other)
  Sender: FDA-Public Use
  Company Number: None

PATIENT
  Sex: Male
  Weight: 71.8 kg

DRUGS (6)
  1. VP-16-213 [Suspect]
     Indication: ACUTE LYMPHOCYTIC LEUKAEMIA
     Dosage: 100 MG/M2 IV OVER 1 HR ON DAY (-3)
     Route: 042
     Dates: start: 20040802
  2. ALLOGINIC BONE MARROW CELLS [Suspect]
     Dosage: 3X10E8 IV ON DAY 0
     Route: 042
  3. GM-CSF [Suspect]
     Dosage: 250 MCG/M2 SC QD STARTING ON DAY 0 UNTIL ANC }/= 1000/MCL
     Route: 058
  4. ALFA 2 INTERFERON [Suspect]
     Dosage: 3 MU SC TIW FOR 25 MONTHS, STARTING ON DAY 30.
     Route: 058
  5. IRRADIATION [Suspect]
     Dosage: TOTAL DOSE 1320 CGY ON DAYS (-6)-(-4)
  6. GLEEVEC [Suspect]

REACTIONS (2)
  - PNEUMONIA PRIMARY ATYPICAL [None]
  - PNEUMONITIS [None]
